FAERS Safety Report 4685836-4 (Version None)
Quarter: 2005Q2

REPORT INFORMATION
  Report Type: 
  Country: None (occurrence: None)
  Receive Date: 20050607
  Receipt Date: 20050607
  Transmission Date: 20051028
  Serious: Yes (Other)
  Sender: FDA-Public Use
  Company Number: None

PATIENT
  Age: 59 Year
  Sex: Male
  Weight: 59 kg

DRUGS (1)
  1. ROSUVASTATIN [Suspect]
     Indication: DYSLIPIDAEMIA
     Dosage: 10 MG PO DAILY
     Route: 048
     Dates: start: 20041130, end: 20050421

REACTIONS (1)
  - ALANINE AMINOTRANSFERASE INCREASED [None]
